FAERS Safety Report 9237606 (Version 3)
Quarter: 2013Q2

REPORT INFORMATION
  Report Type: Spontaneous
  Country: FR (occurrence: FR)
  Receive Date: 20130418
  Receipt Date: 20130611
  Transmission Date: 20140414
  Serious: Yes (Hospitalization, Other)
  Sender: FDA-Public Use
  Company Number: FR-PFIZER INC-2013081471

PATIENT
  Age: 49 Year
  Sex: Female
  Weight: 55 kg

DRUGS (3)
  1. SOLU-MEDROL [Suspect]
     Indication: BRONCHITIS
     Dosage: 40MG/2ML,DILUTED IN PHYSIOLOGICAL SERUM
     Route: 055
  2. SOLU-MEDROL [Suspect]
     Indication: INFLUENZA
  3. GENTALLINE [Concomitant]
     Dosage: 40 MG, 1X/DAY

REACTIONS (24)
  - Off label use [Unknown]
  - Hypersensitivity [Unknown]
  - Blood pressure increased [Unknown]
  - Diabetes mellitus [Unknown]
  - Weight decreased [Not Recovered/Not Resolved]
  - Heart rate increased [Unknown]
  - Dyspnoea [Unknown]
  - Muscular weakness [Not Recovered/Not Resolved]
  - Syncope [Unknown]
  - Dermatitis contact [Unknown]
  - Walking disability [Not Recovered/Not Resolved]
  - Erythema [Unknown]
  - Chills [Unknown]
  - Skin reaction [Unknown]
  - Burning sensation [Unknown]
  - Depressed mood [Unknown]
  - Increased appetite [Not Recovered/Not Resolved]
  - Muscle spasms [Not Recovered/Not Resolved]
  - Dermatitis atopic [Not Recovered/Not Resolved]
  - Somnolence [Unknown]
  - Malaise [Unknown]
  - Urticaria chronic [Not Recovered/Not Resolved]
  - Dermatitis [Not Recovered/Not Resolved]
  - Dry skin [Not Recovered/Not Resolved]
